FAERS Safety Report 9688987 (Version 2)
Quarter: 2013Q4

REPORT INFORMATION
  Report Type: Spontaneous
  Country: AU (occurrence: AU)
  Receive Date: 20131114
  Receipt Date: 20131115
  Transmission Date: 20140711
  Serious: Yes (Other)
  Sender: FDA-Public Use
  Company Number: AU-GLAXOSMITHKLINE-B0942450A

PATIENT
  Sex: Male

DRUGS (1)
  1. ZOVIRAX [Suspect]
     Indication: HERPES SIMPLEX ENCEPHALITIS
     Route: 065

REACTIONS (4)
  - Brain injury [Unknown]
  - Epilepsy [Unknown]
  - Drug ineffective [Unknown]
  - Developmental delay [Unknown]
